FAERS Safety Report 18238729 (Version 1)
Quarter: 2020Q3

REPORT INFORMATION
  Report Type: Spontaneous
  Country: GB (occurrence: GB)
  Receive Date: 20200907
  Receipt Date: 20200907
  Transmission Date: 20201103
  Serious: Yes (Other)
  Sender: FDA-Public Use
  Company Number: GB-VIIV HEALTHCARE LIMITED-GB2020173398

PATIENT
  Age: 49 Year
  Sex: Male
  Weight: 118.83 kg

DRUGS (3)
  1. LAMIVUDINE. [Suspect]
     Active Substance: LAMIVUDINE
     Indication: HIV TEST POSITIVE
     Dosage: ABACAVIR 600MG, LAMIVUDINE 300MG, RILPIVIRINE  25MG
     Route: 048
     Dates: start: 20180801
  2. ABACAVIR. [Suspect]
     Active Substance: ABACAVIR
     Indication: HIV TEST POSITIVE
     Dosage: ABACAVIR 600MG, LAMIVUDINE 300MG, RILPIVIRINE  25MG
     Route: 048
     Dates: start: 20180801
  3. RILPIVIRINE [Suspect]
     Active Substance: RILPIVIRINE
     Indication: HIV TEST POSITIVE
     Dosage: ABACAVIR 600MG, LAMIVUDINE 300MG, RILPIVIRINE  25MG
     Route: 048
     Dates: start: 20180801

REACTIONS (1)
  - Skin odour abnormal [Not Recovered/Not Resolved]

NARRATIVE: CASE EVENT DATE: 20180801
